FAERS Safety Report 9925046 (Version 1)
Quarter: 2014Q1

REPORT INFORMATION
  Report Type: Report from Study
  Country: CA (occurrence: CA)
  Receive Date: 20140226
  Receipt Date: 20140226
  Transmission Date: 20141002
  Serious: Yes (Other)
  Sender: FDA-Public Use
  Company Number: CA-UCBSA-113104

PATIENT
  Age: 54 Year
  Sex: Female
  Weight: 55 kg

DRUGS (5)
  1. CIMZIA [Suspect]
     Indication: RHEUMATOID ARTHRITIS
     Route: 058
     Dates: start: 20130228, end: 20130328
  2. CIMZIA [Suspect]
     Indication: RHEUMATOID ARTHRITIS
     Route: 058
     Dates: start: 20130411, end: 20140130
  3. FOLIC ACID [Concomitant]
     Indication: MINERAL SUPPLEMENTATION
     Dosage: 6/7
     Route: 048
     Dates: start: 2008
  4. METHOTREXATE [Concomitant]
     Indication: RHEUMATOID ARTHRITIS
     Route: 058
     Dates: start: 2008
  5. OXYCODONE [Concomitant]
     Indication: ANALGESIC THERAPY
     Dosage: 5-10MG
     Route: 048

REACTIONS (1)
  - Post procedural infection [Recovering/Resolving]
